FAERS Safety Report 8961782 (Version 1)
Quarter: 2012Q4

REPORT INFORMATION
  Report Type: 
  Country: US (occurrence: US)
  Receive Date: 20121213
  Receipt Date: 20121213
  Transmission Date: 20130627
  Serious: No
  Sender: FDA-Public Use
  Company Number: US-MYLANLABS-2012S1007595

PATIENT
  Age: 48 Year
  Sex: Female

DRUGS (3)
  1. PROPRANOLOL HYDROCHLORIDE [Suspect]
     Indication: PALPITATIONS
     Route: 048
     Dates: start: 20120408, end: 20120408
  2. LEVOTHYROXINE [Concomitant]
  3. ATIVAN [Concomitant]

REACTIONS (1)
  - Chest pain [Recovered/Resolved]
